FAERS Safety Report 9248586 (Version 2)
Quarter: 2013Q2

REPORT INFORMATION
  Report Type: Report from Study
  Country: DE (occurrence: DE)
  Receive Date: 20130423
  Receipt Date: 20130510
  Transmission Date: 20140414
  Serious: Yes (Hospitalization)
  Sender: FDA-Public Use
  Company Number: DE-ROCHE-1213181

PATIENT
  Age: 55 Year
  Sex: Female
  Weight: 49.5 kg

DRUGS (2)
  1. CAPECITABINE [Suspect]
     Indication: BREAST CANCER
     Dosage: LAST DOSE PRIOR TO SAR ON 15/JAN/2013, CYCLES ARE REPEATED EVERY THREE WEEKS
     Route: 048
     Dates: start: 20120208
  2. BEVACIZUMAB [Suspect]
     Indication: BREAST CANCER
     Dosage: LAST DOSE PRIOR TO SAE ON 02/JAN/2013, CYCLES ARE REPEATED EVERY THREE WEEKS
     Route: 042
     Dates: start: 20120208

REACTIONS (1)
  - Limb operation [Recovered/Resolved]
